FAERS Safety Report 14153048 (Version 1)
Quarter: 2017Q4

REPORT INFORMATION
  Report Type: Spontaneous
  Country: US (occurrence: US)
  Receive Date: 20171102
  Receipt Date: 20171102
  Transmission Date: 20180321
  Serious: Yes (Hospitalization)
  Sender: FDA-Public Use
  Company Number: US-UPSHER-SMITH LABORATORIES, INC.-17000190

PATIENT
  Age: 65 Year
  Sex: Female

DRUGS (3)
  1. JANTOVEN [Suspect]
     Active Substance: WARFARIN SODIUM
     Indication: PULMONARY EMBOLISM
     Dosage: 1 MG M, W, F, 2 MG T, TH, S, S
     Route: 048
     Dates: start: 2014, end: 20170104
  2. INCB057643 (INC057643) TABLET [Suspect]
     Active Substance: INVESTIGATIONAL PRODUCT
     Dosage: 12 MG, ONCE
     Route: 048
     Dates: start: 20170107, end: 20170107
  3. INCB057643 (INC057643) TABLET [Suspect]
     Active Substance: INVESTIGATIONAL PRODUCT
     Indication: COLON CANCER
     Dosage: 16 MG, QD
     Route: 048
     Dates: start: 20161219, end: 20170104

REACTIONS (4)
  - Incorrect dose administered [None]
  - International normalised ratio increased [None]
  - Melaena [None]
  - Hyperglycaemia [None]

NARRATIVE: CASE EVENT DATE: 20170103
